FAERS Safety Report 6074091-9 (Version None)
Quarter: 2009Q1

REPORT INFORMATION
  Report Type: 
  Country: None (occurrence: None)
  Receive Date: 20090211
  Receipt Date: 20090205
  Transmission Date: 20090719
  Serious: Yes (Other)
  Sender: FDA-Public Use
  Company Number: A0767803A

PATIENT
  Sex: Male
  Weight: 73.2 kg

DRUGS (2)
  1. COREG [Suspect]
     Indication: HYPERTENSION
     Dosage: 50MG TWICE PER DAY
     Dates: start: 20090203
  2. BENICAR [Concomitant]

REACTIONS (7)
  - BLOOD PRESSURE DECREASED [None]
  - COLD SWEAT [None]
  - DIZZINESS [None]
  - HEART RATE DECREASED [None]
  - NAUSEA [None]
  - OVERDOSE [None]
  - SYNCOPE [None]
